FAERS Safety Report 8274839-9 (Version None)
Quarter: 2012Q2

REPORT INFORMATION
  Report Type: 
  Country: None (occurrence: None)
  Receive Date: 20120409
  Receipt Date: 20120328
  Transmission Date: 20120825
  Serious: Yes (Other)
  Sender: FDA-Public Use
  Company Number: 2012HGS-003406

PATIENT
  Age: 48 Year
  Sex: Female
  Weight: 59 kg

DRUGS (18)
  1. PREDNISOLON (PREDNISOLONE) (PREDNISOLONE) [Concomitant]
  2. FERRLECIT (FERRLECIT /00345601/) (ASCORBIC ACID, RIBOFLAVIN, NICOTINAM [Concomitant]
  3. MARCUMAR (PHENPROCOUMON) (PHENPROCOUMON) [Concomitant]
  4. NEBIVOLOL (NEBIVOLOL) (NEBIVOLOL) [Concomitant]
  5. RENAGEL (SEVELAMER) (SEVELAMER) [Concomitant]
  6. RAMIPRIL [Concomitant]
  7. ROCALTROL (CALCITROL) (CALCITROL) [Concomitant]
  8. MYFORTIC (MYCOPHENOLATE SODIUM) (MYCOPHENOLATE SODIUM) [Concomitant]
  9. IVABRADINE (IVABRADINE) (IVABRADINE) [Concomitant]
  10. VIGANTOLETTEN (COLECALCIFEROL) (COLECALCIFEROL) [Concomitant]
  11. CALCIUM ACETATE (CALCIUM ACETATE) (CALCIUM ACETATE) [Concomitant]
  12. DREISAVIT (DREISAVIT /00844801/) (ASCORBIC ACID, PYRIDOXINE HYDROCHLOR [Concomitant]
  13. NEPHROTRANS (SODIUM BICARBONATE) (SODIUM BICARBONATE) [Concomitant]
  14. BENLYSTA [Suspect]
     Indication: SYSTEMIC LUPUS ERYTHEMATOSUS
     Dosage: 520 MG, 1 IN, INTRAVENOUS (NOT OTHERWISE SPECIFIED)
     Route: 042
     Dates: start: 20120319, end: 20120319
  15. ASS (ACETYLSALICYLIC ACID) (ACETYLSALICYLIC ACID) [Concomitant]
  16. URAPIDIL (URAPIDIL) (URAPIDIL) [Concomitant]
  17. PANTOZOL (PANTOPRAZOLE SODIUM SESQUIHYDRATE) (PANTOPRAZOLE SODIUM SESQ [Concomitant]
  18. L-THYROXIN (LEVOTHYROXINE SODIUM) (LEVOTHYROXINE SODIUM) [Concomitant]

REACTIONS (1)
  - HYPERTENSIVE CRISIS [None]
